FAERS Safety Report 9032093 (Version 2)
Quarter: 2013Q1

REPORT INFORMATION
  Report Type: Spontaneous
  Country: US (occurrence: US)
  Receive Date: 20130122
  Receipt Date: 20130222
  Transmission Date: 20140127
  Serious: Yes (Other)
  Sender: FDA-Public Use
  Company Number: US-JNJFOC-20130111921

PATIENT
  Sex: Male
  Weight: 107.5 kg

DRUGS (4)
  1. DURAGESIC [Suspect]
     Indication: RHEUMATOID ARTHRITIS
     Route: 062
  2. DURAGESIC [Suspect]
     Indication: RHEUMATOID ARTHRITIS
     Route: 062
  3. DURAGESIC [Suspect]
     Indication: RHEUMATOID ARTHRITIS
     Dosage: 75MCG/PATCH/75MCG/1 IN 48 TO 72 HOURS/TD
     Route: 062
  4. REMICADE [Concomitant]
     Indication: RHEUMATOID ARTHRITIS
     Route: 042

REACTIONS (7)
  - Disturbance in sexual arousal [Not Recovered/Not Resolved]
  - Withdrawal syndrome [Recovered/Resolved]
  - Drug dose omission [Recovered/Resolved]
  - Drug ineffective [Not Recovered/Not Resolved]
  - Hyperhidrosis [Recovered/Resolved]
  - Blood testosterone decreased [Recovered/Resolved]
  - Inappropriate schedule of drug administration [Unknown]
